FAERS Safety Report 6415370-2 (Version None)
Quarter: 2009Q4

REPORT INFORMATION
  Report Type: 
  Country: None (occurrence: None)
  Receive Date: 20091026
  Receipt Date: 20091026
  Transmission Date: 20100525
  Serious: Yes (Hospitalization)
  Sender: FDA-Public Use
  Company Number: None

PATIENT
  Sex: Female
  Weight: 64 kg

DRUGS (2)
  1. CYCLOPHOSPHAMIDE [Suspect]
     Dosage: 4357 MG
  2. DOXORUBICIN HCL [Suspect]
     Dosage: 437 MG

REACTIONS (3)
  - DIVERTICULITIS [None]
  - NEUTROPENIA [None]
  - PANCYTOPENIA [None]
